FAERS Safety Report 11108813 (Version 2)
Quarter: 2015Q2

REPORT INFORMATION
  Report Type: Report from Study
  Country: CA (occurrence: None)
  Receive Date: 20150511
  Receipt Date: 20150513
  Transmission Date: 20150821
  Serious: Yes (Disabling, Other)
  Sender: FDA-Public Use
  Company Number: 2015CA003938

PATIENT
  Age: 67 Year
  Sex: Male

DRUGS (2)
  1. ELIGARD [Suspect]
     Active Substance: LEUPROLIDE ACETATE
     Dosage: Q3MONTHS
  2. BICALUTAMIDE TEVA (BICALUTAMIDE) [Suspect]
     Active Substance: BICALUTAMIDE
     Indication: PROSTATE CANCER
     Route: 048

REACTIONS (11)
  - Epistaxis [None]
  - Blood pressure increased [None]
  - Anxiety [None]
  - Sleep disorder [None]
  - Feeling abnormal [None]
  - Choking sensation [None]
  - Fatigue [None]
  - Insomnia [None]
  - Nocturnal dyspnoea [None]
  - Throat tightness [None]
  - Dyspnoea [None]
